FAERS Safety Report 8446182-6 (Version None)
Quarter: 2012Q2

REPORT INFORMATION
  Report Type: 
  Country: None (occurrence: None)
  Receive Date: 20120323
  Receipt Date: 20120323
  Transmission Date: 20120825
  Serious: Yes (Hospitalization)
  Sender: FDA-Public Use
  Company Number: 163-21880-11091286

PATIENT
  Age: 84 Year
  Sex: Female
  Weight: 55.3388 kg

DRUGS (9)
  1. REVLIMID [Suspect]
     Indication: MYELODYSPLASTIC SYNDROME
     Dosage: 5 MG, QD, PO
     Route: 048
     Dates: start: 20110806, end: 20110920
  2. MOM (MAGNESIUM HYDROXIDE) [Concomitant]
  3. OS-CAL + D(LEKOVIT CA) [Concomitant]
  4. COLACE (DOCUSATE SODIUM) [Concomitant]
  5. ASPIRIN [Concomitant]
  6. MULTIVITAMIN [Concomitant]
  7. NAPROXEN (ALEVE) [Concomitant]
  8. VITAMIN B12 [Concomitant]
  9. KLONOPIN [Concomitant]

REACTIONS (5)
  - ASTHENIA [None]
  - BLOOD PRESSURE DECREASED [None]
  - DYSARTHRIA [None]
  - HALLUCINATION [None]
  - CONFUSIONAL STATE [None]
